FAERS Safety Report 6443249-9 (Version None)
Quarter: 2009Q4

REPORT INFORMATION
  Report Type: 
  Country: None (occurrence: None)
  Receive Date: 20091113
  Receipt Date: 20091106
  Transmission Date: 20100525
  Serious: Yes (Life-Threatening, Hospitalization)
  Sender: FDA-Public Use
  Company Number: 2009SP025247

PATIENT
  Age: 48 Year
  Sex: Male

DRUGS (9)
  1. ZEMURON [Suspect]
     Indication: NEUROMUSCULAR BLOCKING THERAPY
     Dosage: ; ONCE; IV
     Route: 042
     Dates: start: 20090902
  2. ZEMURON [Suspect]
  3. ZEMURON [Suspect]
  4. ZEMURON [Suspect]
  5. VERSED [Concomitant]
  6. MORPHINE [Concomitant]
  7. FENTANYL-100 [Concomitant]
  8. PROPOFOL [Concomitant]
  9. SUCCINYLCHOLINE [Concomitant]

REACTIONS (3)
  - ELECTROMECHANICAL DISSOCIATION [None]
  - HYPOTENSION [None]
  - TACHYCARDIA [None]
